FAERS Safety Report 5421633-X (Version None)
Quarter: 2007Q3

REPORT INFORMATION
  Report Type: 
  Country: None (occurrence: None)
  Receive Date: 20070817
  Receipt Date: 20060825
  Transmission Date: 20080115
  Serious: Yes (Other)
  Sender: FDA-Public Use
  Company Number: USBAX-L-20070012

PATIENT

DRUGS (3)
  1. NAVELBINE [Suspect]
     Indication: BREAST CANCER
     Dosage: 25 MG/M2 QD IV
     Route: 042
  2. CAPECITABINE [Suspect]
     Indication: BREAST CANCER
     Dosage: 825 MG/M2
  3. DOCETAXEL [Suspect]
     Indication: BREAST CANCER
     Dosage: 25 MG/M2 QD

REACTIONS (1)
  - FEBRILE NEUTROPENIA [None]
